FAERS Safety Report 18368660 (Version 1)
Quarter: 2020Q4

REPORT INFORMATION
  Report Type: Spontaneous
  Country: None (occurrence: US)
  Receive Date: 20201010
  Receipt Date: 20201010
  Transmission Date: 20210114
  Serious: No
  Sender: FDA-Public Use
  Company Number: US-TECHNOMED INC.-2092632

PATIENT
  Sex: Female

DRUGS (1)
  1. CATAPRES-TTS [Suspect]
     Active Substance: CLONIDINE

REACTIONS (1)
  - Product adhesion issue [Unknown]
